FAERS Safety Report 23585617 (Version 1)
Quarter: 2024Q1

REPORT INFORMATION
  Report Type: Spontaneous
  Country: FR (occurrence: FR)
  Receive Date: 20240301
  Receipt Date: 20240301
  Transmission Date: 20240410
  Serious: Yes (Other)
  Sender: FDA-Public Use
  Company Number: FR-SUN PHARMACEUTICAL INDUSTRIES LTD-2024RR-433127

PATIENT
  Age: 69 Year
  Sex: Male
  Weight: 85 kg

DRUGS (2)
  1. CIPROFLOXACIN [Suspect]
     Active Substance: CIPROFLOXACIN
     Indication: Lung disorder
     Dosage: UNK
     Route: 048
     Dates: start: 20231008, end: 20231013
  2. SPIRAMYCIN [Suspect]
     Active Substance: SPIRAMYCIN
     Indication: Lung disorder
     Dosage: UNK
     Route: 065
     Dates: start: 20231008

REACTIONS (2)
  - Cholestasis [Not Recovered/Not Resolved]
  - Bilirubin conjugated [Not Recovered/Not Resolved]

NARRATIVE: CASE EVENT DATE: 20231013
